FAERS Safety Report 21724614 (Version 1)
Quarter: 2022Q4

REPORT INFORMATION
  Report Type: Other
  Country: JP (occurrence: JP)
  Receive Date: 20221213
  Receipt Date: 20221213
  Transmission Date: 20230113
  Serious: Yes (Other)
  Sender: FDA-Public Use
  Company Number: JP-CHUGAI-2022048832

PATIENT
  Age: 65 Year
  Sex: Male

DRUGS (3)
  1. AVASTIN [Suspect]
     Active Substance: BEVACIZUMAB
     Indication: Rectal adenocarcinoma
     Route: 041
  2. OXALIPLATIN [Concomitant]
     Active Substance: OXALIPLATIN
     Indication: Rectal adenocarcinoma
     Dosage: UNK
     Route: 041
  3. GIMERACIL\OTERACIL\TEGAFUR [Concomitant]
     Active Substance: GIMERACIL\OTERACIL\TEGAFUR
     Indication: Rectal adenocarcinoma
     Dosage: UNK
     Route: 048

REACTIONS (3)
  - Sarcomatoid carcinoma [Unknown]
  - Rectal abscess [Unknown]
  - Sepsis [Unknown]
